FAERS Safety Report 14456686 (Version 1)
Quarter: 2018Q1

REPORT INFORMATION
  Report Type: Spontaneous
  Country: US (occurrence: US)
  Receive Date: 20180129
  Receipt Date: 20180129
  Transmission Date: 20180509
  Serious: Yes (Other)
  Sender: FDA-Public Use
  Company Number: None

PATIENT
  Age: 60 Year
  Sex: Male
  Weight: 74.84 kg

DRUGS (2)
  1. ORBACTIV [Suspect]
     Active Substance: ORITAVANCIN
     Indication: EXTRADURAL ABSCESS
     Dosage: 1200MG Q10D IV
     Route: 042
     Dates: start: 20171002, end: 20171031
  2. ORBACTIV [Suspect]
     Active Substance: ORITAVANCIN
     Indication: STREPTOCOCCAL SEPSIS
     Dosage: 1200MG Q10D IV
     Route: 042
     Dates: start: 20171002, end: 20171031

REACTIONS (4)
  - Flushing [None]
  - Pain [None]
  - Chest pain [None]
  - Back pain [None]

NARRATIVE: CASE EVENT DATE: 20171017
